FAERS Safety Report 9327191 (Version 1)
Quarter: 2013Q2

REPORT INFORMATION
  Report Type: Spontaneous
  Country: US (occurrence: US)
  Receive Date: 20130604
  Receipt Date: 20130604
  Transmission Date: 20140414
  Serious: No
  Sender: FDA-Public Use
  Company Number: US-AMGEN-USASP2013031732

PATIENT
  Age: 11 Year
  Sex: Male
  Weight: 41.2 kg

DRUGS (2)
  1. ENBREL [Suspect]
     Indication: JUVENILE IDIOPATHIC ARTHRITIS
     Dosage: 50 MG, WEEKLY
     Route: 058
     Dates: start: 20120110
  2. CELEBREX [Concomitant]
     Indication: ARTHRITIS
     Dosage: 100 UNK, AS NECESSARY
     Route: 048
     Dates: start: 20120809, end: 20121030

REACTIONS (2)
  - Muscle spasms [Recovered/Resolved]
  - Musculoskeletal stiffness [Recovered/Resolved]
